FAERS Safety Report 7515526-1 (Version None)
Quarter: 2011Q2

REPORT INFORMATION
  Report Type: 
  Country: None (occurrence: None)
  Receive Date: 20110526
  Receipt Date: 20110526
  Transmission Date: 20111010
  Serious: No
  Sender: FDA-Public Use
  Company Number: None

PATIENT
  Age: 32 Year
  Sex: Male
  Weight: 107 kg

DRUGS (1)
  1. PAMIDRONATE DISODIUM [Suspect]
     Indication: PAIN
     Dosage: 60 MG ONCE IV
     Route: 042
     Dates: start: 20110325, end: 20110325

REACTIONS (2)
  - PYREXIA [None]
  - ARTHRALGIA [None]
